FAERS Safety Report 12703691 (Version 1)
Quarter: 2016Q3

REPORT INFORMATION
  Report Type: Spontaneous
  Country: AT (occurrence: AT)
  Receive Date: 20160831
  Receipt Date: 20160831
  Transmission Date: 20161109
  Serious: No
  Sender: FDA-Public Use
  Company Number: PHHY2016AT119377

PATIENT
  Sex: Male

DRUGS (1)
  1. TASIGNA [Suspect]
     Active Substance: NILOTINIB
     Indication: CHRONIC MYELOID LEUKAEMIA
     Dosage: 300 MG, BID
     Route: 065

REACTIONS (1)
  - Wrong technique in product usage process [Unknown]
